FAERS Safety Report 4598568-8 (Version None)
Quarter: 2005Q1

REPORT INFORMATION
  Report Type: 
  Country: None (occurrence: None)
  Receive Date: 20050304
  Receipt Date: 20040802
  Transmission Date: 20050727
  Serious: Yes (Hospitalization)
  Sender: FDA-Public Use
  Company Number: FR-BRISTOL-MYERS SQUIBB COMPANY-12660510

PATIENT
  Age: 63 Year
  Sex: Female

DRUGS (7)
  1. REYATAZ [Suspect]
     Indication: HIV INFECTION
     Route: 048
     Dates: start: 20040612, end: 20040626
  2. NORVIR [Concomitant]
     Indication: HIV INFECTION
     Dates: start: 20040612, end: 20040626
  3. COMBIVIR [Concomitant]
     Dosage: 300/150 TWICE DAILY
     Dates: start: 20040612, end: 20040626
  4. KALETRA [Concomitant]
  5. PENICILLIN [Concomitant]
     Indication: PHARYNGITIS
  6. SURGAM [Concomitant]
     Indication: PHARYNGITIS
     Dates: start: 20040606, end: 20040619
  7. ORELOX [Concomitant]
     Dates: start: 20040606, end: 20040619

REACTIONS (2)
  - ANGIONEUROTIC OEDEMA [None]
  - URTICARIA [None]
